FAERS Safety Report 21934894 (Version 2)
Quarter: 2023Q1

REPORT INFORMATION
  Report Type: Spontaneous
  Country: US (occurrence: None)
  Receive Date: 20230201
  Receipt Date: 20230222
  Transmission Date: 20230418
  Serious: Yes (Hospitalization)
  Sender: FDA-Public Use
  Company Number: US-FARMAPROD-202212-2544

PATIENT
  Age: 82 Year
  Sex: Female

DRUGS (12)
  1. OXERVATE [Suspect]
     Active Substance: CENEGERMIN-BKBJ
     Indication: Neurotrophic keratopathy
     Route: 047
     Dates: start: 20221202, end: 20230205
  2. DORZOLAMIDE\TIMOLOL [Concomitant]
     Active Substance: DORZOLAMIDE\TIMOLOL
  3. LUMIGAN [Concomitant]
     Active Substance: BIMATOPROST
  4. RESTASIS [Concomitant]
     Active Substance: CYCLOSPORINE
  5. MULTIVITAMIN 50 PLUS [Concomitant]
  6. METOPROLOL SUCCINATE [Concomitant]
     Active Substance: METOPROLOL SUCCINATE
  7. SPIRONOLACTONE [Concomitant]
     Active Substance: SPIRONOLACTONE
  8. JARDIANCE [Concomitant]
     Active Substance: EMPAGLIFLOZIN
  9. FENOFIBRATE [Concomitant]
     Active Substance: FENOFIBRATE
  10. ELIQUIS [Concomitant]
     Active Substance: APIXABAN
  11. AMIODARONE HYDROCHLORIDE [Concomitant]
     Active Substance: AMIODARONE HYDROCHLORIDE
  12. LISINOPRIL [Concomitant]
     Active Substance: LISINOPRIL

REACTIONS (8)
  - Hypertension [Unknown]
  - Eye pain [Not Recovered/Not Resolved]
  - Vision blurred [Unknown]
  - Headache [Unknown]
  - Ocular hyperaemia [Recovering/Resolving]
  - Eye irritation [Recovering/Resolving]
  - Eye discharge [Recovering/Resolving]
  - Conjunctivitis [Recovering/Resolving]

NARRATIVE: CASE EVENT DATE: 20221202
